FAERS Safety Report 16997395 (Version 1)
Quarter: 2019Q4

REPORT INFORMATION
  Report Type: Spontaneous
  Country: JP (occurrence: JP)
  Receive Date: 20191106
  Receipt Date: 20191106
  Transmission Date: 20200122
  Serious: No
  Sender: FDA-Public Use
  Company Number: JP-LUPIN PHARMACEUTICALS INC.-2018-06858

PATIENT
  Age: 18 Year
  Sex: Female

DRUGS (1)
  1. TOPIRAMATE. [Suspect]
     Active Substance: TOPIRAMATE
     Indication: MYOTONIA CONGENITA
     Dosage: 5 MG/KG, QD
     Route: 065

REACTIONS (3)
  - Hypohidrosis [Unknown]
  - Condition aggravated [Unknown]
  - Body temperature increased [Unknown]
